FAERS Safety Report 6719569-7 (Version None)
Quarter: 2010Q2

REPORT INFORMATION
  Report Type: 
  Country: None (occurrence: None)
  Receive Date: 20100511
  Receipt Date: 20100427
  Transmission Date: 20101027
  Serious: Yes (Other)
  Sender: FDA-Public Use
  Company Number: US-ELI_LILLY_AND_COMPANY-US201003002700

PATIENT
  Age: 42 Year
  Sex: Male
  Weight: 113.38 kg

DRUGS (6)
  1. EFFIENT [Suspect]
     Indication: PERCUTANEOUS CORONARY INTERVENTION
     Dosage: 60 MG, UNK
     Dates: start: 20100227
  2. EFFIENT [Suspect]
     Dosage: 10 MG, UNK
  3. ASPIRIN [Concomitant]
     Dosage: 325 MG, UNK
  4. HEPARIN [Concomitant]
  5. ACETAMINOPHEN [Concomitant]
  6. CLOPIDOGREL [Concomitant]

REACTIONS (4)
  - FALL [None]
  - HEAD INJURY [None]
  - SUBDURAL HAEMATOMA [None]
  - SYNCOPE [None]
